FAERS Safety Report 12205322 (Version 1)
Quarter: 2016Q1

REPORT INFORMATION
  Report Type: Spontaneous
  Country: ES (occurrence: ES)
  Receive Date: 20160323
  Receipt Date: 20160323
  Transmission Date: 20160526
  Serious: Yes (Death, Hospitalization)
  Sender: FDA-Public Use
  Company Number: PHHY2016ES037727

PATIENT
  Age: 78 Year
  Sex: Female

DRUGS (5)
  1. MIRTAZAPINA [Interacting]
     Active Substance: MIRTAZAPINE
     Indication: PERSISTENT DEPRESSIVE DISORDER
     Dosage: 15 MG, QD
     Route: 048
     Dates: start: 20160122, end: 20160217
  2. CITALOPRAM [Suspect]
     Active Substance: CITALOPRAM HYDROBROMIDE
     Indication: PERSISTENT DEPRESSIVE DISORDER
     Dosage: 20 MG, QD
     Route: 048
     Dates: start: 20160122, end: 20160222
  3. PIPERACILLIN AND TAZOBACTAM [Interacting]
     Active Substance: PIPERACILLIN SODIUM\TAZOBACTAM SODIUM
     Indication: PNEUMONIA
     Dosage: UNK
     Route: 042
     Dates: start: 20160126, end: 20160212
  4. CLEXANE [Interacting]
     Active Substance: ENOXAPARIN SODIUM
     Indication: PRODUCT USED FOR UNKNOWN INDICATION
     Dosage: 60 MG, BID
     Route: 058
     Dates: start: 20160211, end: 20160213
  5. SINTROM [Interacting]
     Active Substance: ACENOCOUMAROL
     Indication: ATRIAL FIBRILLATION
     Dosage: UNK
     Route: 048
     Dates: start: 20160211, end: 20160217

REACTIONS (8)
  - Acute kidney injury [None]
  - Ischaemic hepatitis [None]
  - Abdominal wall haematoma [Fatal]
  - Treatment failure [None]
  - Cardiogenic shock [None]
  - Acute respiratory failure [None]
  - Drug interaction [None]
  - Haemoglobin decreased [None]

NARRATIVE: CASE EVENT DATE: 20160212
